FAERS Safety Report 10433819 (Version 2)
Quarter: 2014Q4

REPORT INFORMATION
  Report Type: Spontaneous
  Country: GB (occurrence: GB)
  Receive Date: 20140905
  Receipt Date: 20141223
  Transmission Date: 20150528
  Serious: Yes (Death, Life-Threatening, Hospitalization, Disabling, Other)
  Sender: FDA-Public Use
  Company Number: GB-INCYTE CORPORATION-2014IN002519

PATIENT
  Age: 39 Year
  Sex: Male

DRUGS (2)
  1. JAKAFI [Suspect]
     Active Substance: RUXOLITINIB
     Indication: MYELOFIBROSIS
     Dosage: 20 MG, BID
     Route: 048
     Dates: start: 201402, end: 201405
  2. JAKAFI [Suspect]
     Active Substance: RUXOLITINIB
     Dosage: 25 MG, BID
     Route: 065
     Dates: start: 20140808

REACTIONS (3)
  - Herpes simplex meningoencephalitis [Fatal]
  - Myelofibrosis [Unknown]
  - Treatment failure [Unknown]

NARRATIVE: CASE EVENT DATE: 20140803
